FAERS Safety Report 8544915-1 (Version None)
Quarter: 2012Q3

REPORT INFORMATION
  Report Type: 
  Country: None (occurrence: None)
  Receive Date: 20120727
  Receipt Date: 20120723
  Transmission Date: 20120928
  Serious: Yes (Death)
  Sender: FDA-Public Use
  Company Number: US-AMGEN-USASP2011063177

PATIENT
  Age: 81 Year
  Sex: Male

DRUGS (3)
  1. ZOMETA [Concomitant]
     Indication: PROSTATE CANCER
     Dosage: 4 MG, UNK
     Route: 042
     Dates: start: 20060901, end: 20110829
  2. XGEVA [Suspect]
     Indication: PRODUCT USED FOR UNKNOWN INDICATION
     Dosage: UNK
     Dates: start: 20111017, end: 20111122
  3. ZOMETA [Concomitant]
     Indication: METASTASES TO BONE

REACTIONS (2)
  - BONE EROSION [None]
  - TOOTH LOSS [None]
